FAERS Safety Report 10537197 (Version 1)
Quarter: 2014Q4

REPORT INFORMATION
  Report Type: Spontaneous
  Country: US (occurrence: US)
  Receive Date: 20141022
  Receipt Date: 20141022
  Transmission Date: 20150529
  Serious: Yes (Hospitalization)
  Sender: FDA-Public Use
  Company Number: PHHY2014US135803

PATIENT
  Age: 51 Year
  Sex: Male

DRUGS (1)
  1. FLUOXETINE [Suspect]
     Active Substance: FLUOXETINE\FLUOXETINE HYDROCHLORIDE
     Indication: DEPRESSION
     Dosage: 40 MG, QD
     Route: 065

REACTIONS (14)
  - Confusional state [Recovering/Resolving]
  - Withdrawal syndrome [Recovering/Resolving]
  - Echolalia [Recovering/Resolving]
  - Mental status changes [Recovering/Resolving]
  - Disorientation [Recovering/Resolving]
  - Stupor [Recovering/Resolving]
  - Consciousness fluctuating [Recovering/Resolving]
  - Dysarthria [Recovering/Resolving]
  - Mutism [Recovering/Resolving]
  - Eyelid function disorder [Recovering/Resolving]
  - Staring [Recovering/Resolving]
  - Agitation [Recovering/Resolving]
  - Delirium [Recovering/Resolving]
  - Catatonia [Recovering/Resolving]
